FAERS Safety Report 5480643-7 (Version None)
Quarter: 2007Q4

REPORT INFORMATION
  Report Type: 
  Country: None (occurrence: None)
  Receive Date: 20071009
  Receipt Date: 20070927
  Transmission Date: 20080405
  Serious: Yes (Other)
  Sender: FDA-Public Use
  Company Number: US-JNJFOC-20070703833

PATIENT
  Sex: Female
  Weight: 58.97 kg

DRUGS (2)
  1. TOPAMAX [Suspect]
     Route: 048
  2. TOPAMAX [Suspect]
     Indication: MIGRAINE PROPHYLAXIS
     Route: 048

REACTIONS (5)
  - CONJUNCTIVAL CYST [None]
  - EYE DISORDER [None]
  - EYE INFECTION VIRAL [None]
  - EYE PAIN [None]
  - OCULAR HYPERAEMIA [None]
